FAERS Safety Report 26208778 (Version 1)
Quarter: 2025Q4

REPORT INFORMATION
  Report Type: Spontaneous
  Country: CN (occurrence: CN)
  Receive Date: 20251229
  Receipt Date: 20251229
  Transmission Date: 20260118
  Serious: Yes (Other)
  Sender: BAYER HEALTHCARE PHARMACEUTICALS INC.
  Company Number: CN-BAYER-2025A169779

PATIENT
  Age: 30 Year
  Sex: Male
  Weight: 96.7 kg

DRUGS (4)
  1. AVELOX [Suspect]
     Active Substance: MOXIFLOXACIN HYDROCHLORIDE
     Indication: Pneumonitis
     Dosage: 0.4 G, QD
     Route: 041
     Dates: start: 20251212, end: 20251214
  2. LINEZOLID [Suspect]
     Active Substance: LINEZOLID
     Indication: Pneumonitis
     Dosage: 0.6 G, BID
     Route: 041
     Dates: start: 20251205, end: 20251218
  3. MOXIFLOXACIN HYDROCHLORIDE [Suspect]
     Active Substance: MOXIFLOXACIN HYDROCHLORIDE
     Indication: Pneumonitis
     Dosage: 0.4 G, QD
     Route: 041
     Dates: start: 20251201, end: 20251211
  4. MOXIFLOXACIN HYDROCHLORIDE [Suspect]
     Active Substance: MOXIFLOXACIN HYDROCHLORIDE
     Indication: Pneumonitis
     Dosage: 0.4 G, QD
     Route: 041
     Dates: start: 20251215, end: 20251220

REACTIONS (2)
  - Platelet count decreased [Recovering/Resolving]
  - Haemorrhage [Recovered/Resolved]

NARRATIVE: CASE EVENT DATE: 20251218
